FAERS Safety Report 9120369 (Version 2)
Quarter: 2013Q4

REPORT INFORMATION
  Report Type: Report from Study
  Country: US (occurrence: US)
  Receive Date: 20130226
  Receipt Date: 20131022
  Transmission Date: 20140711
  Serious: Yes (Death, Hospitalization)
  Sender: FDA-Public Use
  Company Number: US-CELGENEUS-163-21880-13022493

PATIENT
  Age: 67 Year
  Sex: Male
  Weight: 84.72 kg

DRUGS (23)
  1. REVLIMID [Suspect]
     Indication: ACUTE MYELOID LEUKAEMIA RECURRENT
     Dosage: 50 MILLIGRAM
     Route: 048
     Dates: start: 20130123, end: 20130210
  2. AZACITIDINE INJECTABLE [Suspect]
     Indication: ACUTE MYELOID LEUKAEMIA RECURRENT
     Dosage: 75 MILLIGRAM/SQ. METER
     Route: 058
     Dates: start: 20130123, end: 20130210
  3. ACYCLOVIR [Concomitant]
     Indication: PRODUCT USED FOR UNKNOWN INDICATION
     Dosage: 400 MILLIGRAM
     Route: 048
  4. COLACE [Concomitant]
     Indication: PRODUCT USED FOR UNKNOWN INDICATION
     Route: 065
  5. DOXYCYCLINE [Concomitant]
     Indication: PRODUCT USED FOR UNKNOWN INDICATION
     Dosage: 200 MILLIGRAM
     Route: 048
  6. FUROSEMIDE [Concomitant]
     Indication: PRODUCT USED FOR UNKNOWN INDICATION
     Dosage: 20 MILLIGRAM
     Route: 048
  7. LEVOFLOXACIN [Concomitant]
     Indication: PRODUCT USED FOR UNKNOWN INDICATION
     Route: 065
  8. OMEPRAZOLE [Concomitant]
     Indication: PRODUCT USED FOR UNKNOWN INDICATION
     Dosage: 40 MILLIGRAM
     Route: 048
  9. ONDANSETRON [Concomitant]
     Indication: NAUSEA
     Route: 048
  10. OXYCODONE [Concomitant]
     Indication: ARTHRALGIA
     Route: 048
     Dates: start: 20130208
  11. OXYCODONE [Concomitant]
     Indication: PAIN IN EXTREMITY
  12. ALLOPURINOL [Concomitant]
     Indication: GOUTY ARTHRITIS
     Dosage: 100 MILLIGRAM
     Route: 048
  13. COLCHICINE [Concomitant]
     Indication: GOUT
     Route: 048
  14. TERAZOSIN [Concomitant]
     Indication: BENIGN PROSTATIC HYPERPLASIA
     Dosage: 5 MILLIGRAM
     Route: 048
  15. ZOLPIDEM [Concomitant]
     Indication: INSOMNIA
     Dosage: 10 MILLIGRAM
     Route: 048
  16. CALCIUM WITH VITAMIN D [Concomitant]
     Indication: NUTRITIONAL SUPPLEMENTATION
     Dosage: 500 MILLIGRAM
     Route: 048
  17. ACETAMINOPHEN [Concomitant]
     Indication: PROPHYLAXIS
     Route: 048
     Dates: start: 20130123, end: 20130210
  18. ACETAMINOPHEN [Concomitant]
     Route: 048
     Dates: start: 20130208
  19. DIPHENHYDRAMINE [Concomitant]
     Indication: PROPHYLAXIS
     Route: 048
     Dates: start: 20130123, end: 20130210
  20. NORMAL SALINE [Concomitant]
     Indication: PYREXIA
     Route: 041
     Dates: start: 20130126, end: 20130126
  21. NORMAL SALINE [Concomitant]
     Route: 041
     Dates: start: 20130206, end: 20130206
  22. NORMAL SALINE [Concomitant]
     Route: 041
     Dates: start: 20130208
  23. CEFTRIAXONE [Concomitant]
     Indication: PRODUCT USED FOR UNKNOWN INDICATION
     Route: 041
     Dates: start: 20130126, end: 20130127

REACTIONS (2)
  - Pneumonia [Fatal]
  - Febrile neutropenia [Recovered/Resolved]
